FAERS Safety Report 4630367-0 (Version None)
Quarter: 2005Q2

REPORT INFORMATION
  Report Type: 
  Country: None (occurrence: None)
  Receive Date: 20050406
  Receipt Date: 20050324
  Transmission Date: 20051028
  Serious: Yes (Other)
  Sender: FDA-Public Use
  Company Number: 2005048479

PATIENT
  Age: 54 Year
  Sex: Male
  Weight: 106.5953 kg

DRUGS (2)
  1. VIAGRA [Suspect]
     Indication: ERECTILE DYSFUNCTION
     Dosage: 50 MG (50 MG, AS NECESSARY), ORAL
     Route: 048
  2. LOSARTAN POTASSIUM [Concomitant]

REACTIONS (3)
  - DRUG INEFFECTIVE [None]
  - POST PROCEDURAL COMPLICATION [None]
  - PROSTATE CANCER [None]
